FAERS Safety Report 12807509 (Version 1)
Quarter: 2016Q4

REPORT INFORMATION
  Report Type: Spontaneous
  Country: US (occurrence: US)
  Receive Date: 20161004
  Receipt Date: 20161004
  Transmission Date: 20170207
  Serious: Yes (Hospitalization)
  Sender: FDA-Public Use
  Company Number: None

PATIENT
  Age: 33 Year
  Sex: Male

DRUGS (6)
  1. COLISTIN [Concomitant]
     Active Substance: COLISTIN
  2. SOD CHL [Concomitant]
  3. PULMOZYME [Suspect]
     Active Substance: DORNASE ALFA
     Dosage: 2.5 QD NEB
     Dates: start: 20130801
  4. TOBRAMYCIN 300MG AKORN [Suspect]
     Active Substance: TOBRAMYCIN
     Indication: CYSTIC FIBROSIS
     Dosage: 300 BID NEB
     Dates: start: 20140328
  5. CAYSTON [Concomitant]
     Active Substance: AZTREONAM
  6. AQUADEKS [Concomitant]
     Active Substance: MINERALS\VITAMINS

REACTIONS (1)
  - Hospitalisation [None]

NARRATIVE: CASE EVENT DATE: 20160922
